FAERS Safety Report 8586124-6 (Version None)
Quarter: 2012Q3

REPORT INFORMATION
  Report Type: 
  Country: None (occurrence: None)
  Receive Date: 20120810
  Receipt Date: 20120808
  Transmission Date: 20120928
  Serious: Yes (Death)
  Sender: FDA-Public Use
  Company Number: UG-PFIZER INC-2012176280

PATIENT
  Age: 23 Year
  Sex: Female
  Weight: 37.5 kg

DRUGS (5)
  1. TENOFOVIR [Concomitant]
     Indication: ANTIRETROVIRAL THERAPY
     Dosage: UNK
     Dates: start: 20120503
  2. EFAVIRENZ [Concomitant]
     Indication: ANTIRETROVIRAL THERAPY
     Dosage: UNK
     Dates: start: 20120503
  3. LAMIVUDINE [Concomitant]
     Indication: ANTIRETROVIRAL THERAPY
     Dosage: UNK
     Dates: start: 20120503
  4. MEDROXYPROGESTERONE ACETATE [Suspect]
     Indication: CONTRACEPTION
     Dosage: UNK, EVERY 3 MONTHS
     Route: 058
     Dates: start: 20120425
  5. COTRIM [Concomitant]
     Dosage: UNK

REACTIONS (1)
  - IMMUNE RECONSTITUTION SYNDROME [None]
